FAERS Safety Report 4703029-9 (Version None)
Quarter: 2005Q2

REPORT INFORMATION
  Report Type: 
  Country: None (occurrence: None)
  Receive Date: 20050628
  Receipt Date: 20050628
  Transmission Date: 20051028
  Serious: Yes (Disabling, Other)
  Sender: FDA-Public Use
  Company Number: None

PATIENT
  Age: 50 Year
  Sex: Female
  Weight: 49.8957 kg

DRUGS (6)
  1. LEVAQUIN [Suspect]
     Indication: BRONCHITIS
     Dosage: 750 MG DLY X 5 DAYS
     Dates: start: 20051213, end: 20051218
  2. LEVAQUIN [Suspect]
     Indication: CHRONIC OBSTRUCTIVE PULMONARY DISEASE
     Dosage: 750 MG DLY X 5 DAYS
     Dates: start: 20051213, end: 20051218
  3. LEVAQUIN [Suspect]
     Indication: PNEUMONIA
     Dosage: 750 MG DLY X 5 DAYS
     Dates: start: 20051213, end: 20051218
  4. ALBUTEROL [Concomitant]
  5. ENTAB DM [Concomitant]
  6. ESTRACE [Concomitant]

REACTIONS (11)
  - ARTHRALGIA [None]
  - BACK PAIN [None]
  - ECONOMIC PROBLEM [None]
  - HEADACHE [None]
  - HYPOAESTHESIA [None]
  - INFLUENZA [None]
  - INSOMNIA [None]
  - LOSS OF EMPLOYMENT [None]
  - NECK PAIN [None]
  - PARAESTHESIA [None]
  - SPINAL DISORDER [None]
